FAERS Safety Report 23816513 (Version 2)
Quarter: 2024Q2

REPORT INFORMATION
  Report Type: Spontaneous
  Country: US (occurrence: None)
  Receive Date: 20240503
  Receipt Date: 20240606
  Transmission Date: 20240716
  Serious: No
  Sender: FDA-Public Use
  Company Number: 2024A099906

PATIENT
  Age: 856 Month
  Sex: Female

DRUGS (2)
  1. BREZTRI [Suspect]
     Active Substance: BUDESONIDE\FORMOTEROL\GLYCOPYRROLATE
     Dosage: 160UG/L TWO TIMES A DAY
     Route: 055
     Dates: start: 20240229
  2. SYMBICORT [Suspect]
     Active Substance: BUDESONIDE\FORMOTEROL FUMARATE DIHYDRATE
     Dosage: 160 UG , TWO TIMES A DAY
     Route: 055
     Dates: end: 20231231

REACTIONS (6)
  - Cough [Unknown]
  - Dyspnoea [Unknown]
  - Haemoptysis [Unknown]
  - Drug dose omission by device [Unknown]
  - Device defective [Unknown]
  - Device use issue [Unknown]

NARRATIVE: CASE EVENT DATE: 20240201
